FAERS Safety Report 25084110 (Version 1)
Quarter: 2025Q1

REPORT INFORMATION
  Report Type: Spontaneous
  Country: FR (occurrence: FR)
  Receive Date: 20250317
  Receipt Date: 20250317
  Transmission Date: 20250409
  Serious: Yes (Hospitalization)
  Sender: ACCORD
  Company Number: None

PATIENT
  Age: 82 Year
  Sex: Female

DRUGS (12)
  1. ATORVASTATIN [Suspect]
     Active Substance: ATORVASTATIN
     Indication: Dyslipidaemia
  2. IRBESARTAN [Suspect]
     Active Substance: IRBESARTAN
     Indication: Hypertension
  3. LETROZOLE [Suspect]
     Active Substance: LETROZOLE
     Indication: Breast cancer
     Dates: start: 20220801
  4. METFORMIN [Suspect]
     Active Substance: METFORMIN HYDROCHLORIDE
     Indication: Type 2 diabetes mellitus
  5. PROPRANOLOL [Suspect]
     Active Substance: PROPRANOLOL HYDROCHLORIDE
     Indication: Obstruction gastric
  6. GLICLAZIDE [Suspect]
     Active Substance: GLICLAZIDE
     Indication: Type 2 diabetes mellitus
  7. LEVOTHYROXINE [Suspect]
     Active Substance: LEVOTHYROXINE
     Indication: Thyroid mass
     Dosage: 50 MICROGRAMS, SCORED TABLET
  8. HYDROCHLOROTHIAZIDE [Suspect]
     Active Substance: HYDROCHLOROTHIAZIDE
     Indication: Hypertension
  9. AMLODIPINE [Suspect]
     Active Substance: AMLODIPINE BESYLATE
     Indication: Hypertension
     Dates: start: 202412
  10. ACTONEL [Suspect]
     Active Substance: RISEDRONATE SODIUM
     Indication: Osteoporosis
     Dosage: 35 MG
  11. KARDEGIC [Concomitant]
     Active Substance: ASPIRIN DL-LYSINE
     Dosage: 75 MG  POWDER FOR ORAL SOLUTION IN SACHET-DOSE
     Dates: start: 20250111
  12. CLOPIDOGREL [Concomitant]
     Active Substance: CLOPIDOGREL BISULFATE
     Dates: start: 20250111

REACTIONS (1)
  - Ischaemic stroke [Recovered/Resolved]

NARRATIVE: CASE EVENT DATE: 20250202
